FAERS Safety Report 10265236 (Version 1)
Quarter: 2014Q2

REPORT INFORMATION
  Report Type: Report from Study
  Country: FR (occurrence: FR)
  Receive Date: 20140627
  Receipt Date: 20140627
  Transmission Date: 20141212
  Serious: Yes (Hospitalization)
  Sender: FDA-Public Use
  Company Number: FR-BAYER-2014-094226

PATIENT
  Age: 51 Year
  Sex: Female

DRUGS (5)
  1. REGORAFENIB [Suspect]
     Indication: COLORECTAL CANCER METASTATIC
     Dosage: 160 MG, QD
     Dates: start: 20130423
  2. REGORAFENIB [Suspect]
     Indication: METASTASES TO LUNG
     Dosage: DOSE REDUCED
  3. REGORAFENIB [Suspect]
     Indication: METASTASES TO LYMPH NODES
  4. REGORAFENIB [Suspect]
     Indication: METASTASES TO SKIN
  5. OXYCONTIN [Concomitant]
     Dosage: 60 MG, QD
     Dates: start: 20130105

REACTIONS (3)
  - Haematotoxicity [Recovered/Resolved]
  - Hepatotoxicity [Recovered/Resolved]
  - Palmar-plantar erythrodysaesthesia syndrome [Recovered/Resolved]
